FAERS Safety Report 21014089 (Version 1)
Quarter: 2022Q2

REPORT INFORMATION
  Report Type: Spontaneous
  Country: US (occurrence: US)
  Receive Date: 20220627
  Receipt Date: 20220627
  Transmission Date: 20220721
  Serious: No
  Sender: FDA-Public Use
  Company Number: US-SA-SAC20220622000328

PATIENT
  Age: 68 Year
  Sex: Female

DRUGS (2)
  1. DUPIXENT [Suspect]
     Active Substance: DUPILUMAB
     Dosage: 300 MG
     Route: 058
  2. ACYCLOVIR [Concomitant]
     Active Substance: ACYCLOVIR

REACTIONS (4)
  - Oral herpes [Unknown]
  - Feeling hot [Unknown]
  - Dyspnoea [Recovering/Resolving]
  - Mouth haemorrhage [Unknown]
